FAERS Safety Report 6303407-0 (Version None)
Quarter: 2009Q3

REPORT INFORMATION
  Report Type: 
  Country: None (occurrence: None)
  Receive Date: 20090810
  Receipt Date: 20090623
  Transmission Date: 20100115
  Serious: No
  Sender: FDA-Public Use
  Company Number: US-BAYER-200912696BCC

PATIENT
  Age: 57 Year
  Sex: Male
  Weight: 163 kg

DRUGS (2)
  1. ALEVE [Suspect]
     Indication: ARTHRALGIA
     Dosage: UNIT DOSE: 220 MG
     Route: 048
     Dates: start: 20050101
  2. PLAVIX [Concomitant]
     Route: 065

REACTIONS (3)
  - GASTRIC DISORDER [None]
  - HYPOPHAGIA [None]
  - VOMITING [None]
